FAERS Safety Report 7739550-9 (Version None)
Quarter: 2011Q3

REPORT INFORMATION
  Report Type: 
  Country: None (occurrence: None)
  Receive Date: 20110909
  Receipt Date: 20110830
  Transmission Date: 20111222
  Serious: Yes (Hospitalization)
  Sender: FDA-Public Use
  Company Number: US-AMGEN-USASP2011042429

PATIENT
  Age: 54 Year
  Sex: Female

DRUGS (2)
  1. METHOTREXATE [Concomitant]
     Dosage: UNK
  2. ENBREL [Suspect]
     Indication: RHEUMATOID ARTHRITIS
     Dosage: 25 MG, 2 TIMES/WK
     Dates: start: 20000101, end: 20000101

REACTIONS (7)
  - RHEUMATOID ARTHRITIS [None]
  - SURGERY [None]
  - GAIT DISTURBANCE [None]
  - BACK PAIN [None]
  - LIVER FUNCTION TEST ABNORMAL [None]
  - ARTHRALGIA [None]
  - PAIN IN EXTREMITY [None]
